FAERS Safety Report 7257316-3 (Version None)
Quarter: 2011Q1

REPORT INFORMATION
  Report Type: 
  Country: None (occurrence: None)
  Receive Date: 20110129
  Receipt Date: 20100719
  Transmission Date: 20110831
  Serious: No
  Sender: FDA-Public Use
  Company Number: US-ABBOTT-10P-163-0658778-00

PATIENT
  Sex: Female
  Weight: 86.26 kg

DRUGS (4)
  1. METHOTREXATE [Concomitant]
     Indication: RHEUMATOID ARTHRITIS
     Dates: start: 20100701
  2. VALTREX [Concomitant]
     Indication: HERPES VIRUS INFECTION
  3. ZOLOFT [Concomitant]
     Indication: MOOD SWINGS
  4. HUMIRA [Suspect]
     Indication: RHEUMATOID ARTHRITIS
     Dates: start: 20080101

REACTIONS (2)
  - ARTHRALGIA [None]
  - DEVICE MALFUNCTION [None]
